FAERS Safety Report 17426564 (Version 1)
Quarter: 2020Q1

REPORT INFORMATION
  Report Type: Spontaneous
  Country: CN (occurrence: CN)
  Receive Date: 20200218
  Receipt Date: 20200218
  Transmission Date: 20200409
  Serious: Yes (Hospitalization, Other)
  Sender: FDA-Public Use
  Company Number: CN-ALKEM LABORATORIES LIMITED-CN-ALKEM-2019-08817

PATIENT
  Age: 45 Year
  Sex: Male

DRUGS (48)
  1. MOXIFLOXACIN. [Suspect]
     Active Substance: MOXIFLOXACIN
     Indication: CLOSTRIDIUM DIFFICILE INFECTION
  2. VANCOMYCIN [Suspect]
     Active Substance: VANCOMYCIN
     Indication: BURKHOLDERIA CEPACIA COMPLEX INFECTION
  3. MEROPENEM. [Suspect]
     Active Substance: MEROPENEM
     Indication: BURKHOLDERIA CEPACIA COMPLEX INFECTION
  4. PIPERACILLIN. [Suspect]
     Active Substance: PIPERACILLIN SODIUM
     Indication: STAPHYLOCOCCAL INFECTION
  5. PIPERACILLIN. [Suspect]
     Active Substance: PIPERACILLIN SODIUM
     Indication: BURKHOLDERIA CEPACIA COMPLEX INFECTION
  6. TAZOBACTAM [Suspect]
     Active Substance: TAZOBACTAM
     Indication: BURKHOLDERIA CEPACIA COMPLEX INFECTION
  7. LINEZOLID. [Suspect]
     Active Substance: LINEZOLID
     Indication: STAPHYLOCOCCAL INFECTION
  8. MOXIFLOXACIN. [Suspect]
     Active Substance: MOXIFLOXACIN
     Indication: PNEUMONIA KLEBSIELLA
  9. TIGECYCLINE. [Suspect]
     Active Substance: TIGECYCLINE
     Indication: STAPHYLOCOCCAL INFECTION
  10. POLYMYXIN B. [Suspect]
     Active Substance: POLYMYXIN B
     Indication: ACINETOBACTER INFECTION
     Dosage: UNK
     Route: 065
  11. POLYMYXIN B. [Suspect]
     Active Substance: POLYMYXIN B
     Indication: PNEUMONIA KLEBSIELLA
  12. POLYMYXIN B. [Suspect]
     Active Substance: POLYMYXIN B
     Indication: STAPHYLOCOCCAL INFECTION
  13. LINEZOLID. [Suspect]
     Active Substance: LINEZOLID
     Indication: ACINETOBACTER INFECTION
     Dosage: UNK
     Route: 065
  14. LINEZOLID. [Suspect]
     Active Substance: LINEZOLID
     Indication: PNEUMONIA KLEBSIELLA
  15. MOXIFLOXACIN. [Suspect]
     Active Substance: MOXIFLOXACIN
     Indication: STAPHYLOCOCCAL INFECTION
  16. TIGECYCLINE. [Suspect]
     Active Substance: TIGECYCLINE
     Indication: TINEA CAPITIS
  17. PIPERACILLIN. [Suspect]
     Active Substance: PIPERACILLIN SODIUM
     Indication: ACINETOBACTER INFECTION
     Dosage: UNK
     Route: 065
  18. PIPERACILLIN. [Suspect]
     Active Substance: PIPERACILLIN SODIUM
     Indication: CLOSTRIDIUM DIFFICILE INFECTION
  19. LINEZOLID. [Suspect]
     Active Substance: LINEZOLID
     Indication: CLOSTRIDIUM DIFFICILE INFECTION
  20. POLYMYXIN B. [Suspect]
     Active Substance: POLYMYXIN B
     Indication: TINEA CAPITIS
  21. VANCOMYCIN [Suspect]
     Active Substance: VANCOMYCIN
     Indication: PNEUMONIA KLEBSIELLA
  22. MEROPENEM. [Suspect]
     Active Substance: MEROPENEM
     Indication: PNEUMONIA KLEBSIELLA
  23. MEROPENEM. [Suspect]
     Active Substance: MEROPENEM
     Indication: CLOSTRIDIUM DIFFICILE INFECTION
  24. PIPERACILLIN. [Suspect]
     Active Substance: PIPERACILLIN SODIUM
     Indication: TINEA CAPITIS
  25. TIGECYCLINE. [Suspect]
     Active Substance: TIGECYCLINE
     Indication: ACINETOBACTER INFECTION
     Dosage: UNK
     Route: 065
  26. POLYMYXIN B. [Suspect]
     Active Substance: POLYMYXIN B
     Indication: BURKHOLDERIA CEPACIA COMPLEX INFECTION
  27. MEROPENEM. [Suspect]
     Active Substance: MEROPENEM
     Indication: TINEA CAPITIS
  28. TAZOBACTAM [Suspect]
     Active Substance: TAZOBACTAM
     Indication: ACINETOBACTER INFECTION
     Dosage: UNK
     Route: 065
  29. TAZOBACTAM [Suspect]
     Active Substance: TAZOBACTAM
     Indication: PNEUMONIA KLEBSIELLA
  30. TAZOBACTAM [Suspect]
     Active Substance: TAZOBACTAM
     Indication: STAPHYLOCOCCAL INFECTION
  31. LINEZOLID. [Suspect]
     Active Substance: LINEZOLID
     Indication: BURKHOLDERIA CEPACIA COMPLEX INFECTION
  32. LINEZOLID. [Suspect]
     Active Substance: LINEZOLID
     Indication: TINEA CAPITIS
  33. MOXIFLOXACIN. [Suspect]
     Active Substance: MOXIFLOXACIN
     Indication: ACINETOBACTER INFECTION
     Dosage: UNK
     Route: 065
  34. TIGECYCLINE. [Suspect]
     Active Substance: TIGECYCLINE
     Indication: PNEUMONIA KLEBSIELLA
  35. TIGECYCLINE. [Suspect]
     Active Substance: TIGECYCLINE
     Indication: BURKHOLDERIA CEPACIA COMPLEX INFECTION
  36. MEROPENEM. [Suspect]
     Active Substance: MEROPENEM
     Indication: ACINETOBACTER INFECTION
     Dosage: UNK
     Route: 065
  37. TAZOBACTAM [Suspect]
     Active Substance: TAZOBACTAM
     Indication: CLOSTRIDIUM DIFFICILE INFECTION
  38. MOXIFLOXACIN. [Suspect]
     Active Substance: MOXIFLOXACIN
     Indication: TINEA CAPITIS
  39. POLYMYXIN B. [Suspect]
     Active Substance: POLYMYXIN B
     Indication: CLOSTRIDIUM DIFFICILE INFECTION
  40. VANCOMYCIN [Suspect]
     Active Substance: VANCOMYCIN
     Indication: ACINETOBACTER INFECTION
     Dosage: UNK
     Route: 065
  41. VANCOMYCIN [Suspect]
     Active Substance: VANCOMYCIN
     Indication: STAPHYLOCOCCAL INFECTION
  42. MEROPENEM. [Suspect]
     Active Substance: MEROPENEM
     Indication: STAPHYLOCOCCAL INFECTION
  43. PIPERACILLIN. [Suspect]
     Active Substance: PIPERACILLIN SODIUM
     Indication: PNEUMONIA KLEBSIELLA
  44. MOXIFLOXACIN. [Suspect]
     Active Substance: MOXIFLOXACIN
     Indication: BURKHOLDERIA CEPACIA COMPLEX INFECTION
  45. TIGECYCLINE. [Suspect]
     Active Substance: TIGECYCLINE
     Indication: CLOSTRIDIUM DIFFICILE INFECTION
  46. VANCOMYCIN [Suspect]
     Active Substance: VANCOMYCIN
     Indication: TINEA CAPITIS
  47. VANCOMYCIN [Suspect]
     Active Substance: VANCOMYCIN
     Indication: CLOSTRIDIUM DIFFICILE INFECTION
  48. TAZOBACTAM [Suspect]
     Active Substance: TAZOBACTAM
     Indication: TINEA CAPITIS

REACTIONS (1)
  - Drug ineffective [Unknown]
